FAERS Safety Report 11607829 (Version 2)
Quarter: 2015Q4

REPORT INFORMATION
  Report Type: Spontaneous
  Country: IT (occurrence: IT)
  Receive Date: 20151007
  Receipt Date: 20151008
  Transmission Date: 20160304
  Serious: Yes (Hospitalization)
  Sender: FDA-Public Use
  Company Number: IT-ROCHE-1642689

PATIENT
  Age: 63 Year
  Sex: Female
  Weight: 70 kg

DRUGS (7)
  1. GRANISETRON [Concomitant]
     Active Substance: GRANISETRON
     Indication: PROPHYLAXIS OF NAUSEA AND VOMITING
     Dosage: ^1 MG/ML-5 X 3 ML GLASS VIALS
     Route: 042
     Dates: start: 20150729, end: 20150930
  2. TRIMETON (ITALY) [Concomitant]
     Indication: HYPERSENSITIVITY
     Dosage: ^10 MG/1 ML SOLUTION FOR INJECTION^ 5 X 1 ML VIALS
     Route: 042
     Dates: start: 20150729, end: 20150930
  3. HERCEPTIN [Suspect]
     Active Substance: TRASTUZUMAB
     Indication: BREAST CANCER
     Dosage: 150 MG -1 VIAL FOR INTRAVENOUS USE
     Route: 042
     Dates: start: 20150729, end: 20150930
  4. PERJETA [Suspect]
     Active Substance: PERTUZUMAB
     Indication: BREAST CANCER
     Dosage: 420 MG -VIAL (GLASS) - 30 MG/ML - 1 VIAL
     Route: 042
     Dates: start: 20150729, end: 20150930
  5. URBASON [Concomitant]
     Active Substance: METHYLPREDNISOLONE
     Indication: INFLAMMATION
     Dosage: ^20 MG/ML 3 VIALS POWDER + 3 X 1 ML VIALS SOLVENT
     Route: 042
     Dates: start: 20150729, end: 20150930
  6. TAXOTERE [Concomitant]
     Active Substance: DOCETAXEL
     Indication: BREAST CANCER
     Dosage: ^20 MG^ CONCENTRATE FOR IV INFUSIONS + SOLVENT
     Route: 042
     Dates: start: 20150729, end: 20150930
  7. ZANTAC [Concomitant]
     Active Substance: RANITIDINE HYDROCHLORIDE
     Indication: PROPHYLAXIS OF NAUSEA AND VOMITING
     Dosage: 50 MG/5 ML - 10 VIALS
     Route: 042
     Dates: start: 20150729, end: 20150930

REACTIONS (3)
  - Dysentery [Unknown]
  - Pyrexia [Unknown]
  - Vomiting [Unknown]

NARRATIVE: CASE EVENT DATE: 20150806
